FAERS Safety Report 5804217-0 (Version None)
Quarter: 2008Q3

REPORT INFORMATION
  Report Type: 
  Country: None (occurrence: None)
  Receive Date: 20080707
  Receipt Date: 20080619
  Transmission Date: 20090109
  Serious: Yes (Life-Threatening)
  Sender: FDA-Public Use
  Company Number: 2008EU001216

PATIENT
  Age: 50 Year
  Sex: Female

DRUGS (3)
  1. PROGRAF [Suspect]
     Indication: RENAL TRANSPLANT
     Dosage: 0.015 MG/KG, UID/QD
  2. PREDNISOLONE [Suspect]
     Indication: RENAL TRANSPLANT
     Dosage: 1.5 MG/KG, UID/QD; 10 MG, UID/QD
  3. MYCOPHENOLATE MOFETIL [Suspect]
     Indication: RENAL TRANSPLANT
     Dosage: 1.5 G, UID/QD

REACTIONS (12)
  - DRUG TOXICITY [None]
  - EXOPHTHALMOS [None]
  - HAEMATOMA [None]
  - HAEMODIALYSIS [None]
  - HEADACHE [None]
  - MUCORMYCOSIS [None]
  - OLIGURIA [None]
  - PYREXIA [None]
  - RENAL TUBULAR NECROSIS [None]
  - SINUSITIS [None]
  - TRANSPLANT REJECTION [None]
  - WOUND INFECTION [None]
